FAERS Safety Report 8078267-0 (Version None)
Quarter: 2012Q1

REPORT INFORMATION
  Report Type: 
  Country: None (occurrence: None)
  Receive Date: 20120123
  Receipt Date: 20120109
  Transmission Date: 20120608
  Serious: Yes (Other)
  Sender: FDA-Public Use
  Company Number: FR-1189822

PATIENT
  Age: 3 Year
  Sex: Female

DRUGS (1)
  1. CYCLOPENTOLATE HCL [Suspect]
     Dosage: OPHTHALMIC
     Route: 047

REACTIONS (4)
  - DRUG HYPERSENSITIVITY [None]
  - ASTHMA [None]
  - LARYNX IRRITATION [None]
  - FACE OEDEMA [None]
